FAERS Safety Report 10230618 (Version 1)
Quarter: 2014Q2

REPORT INFORMATION
  Report Type: Spontaneous
  Country: FR (occurrence: FR)
  Receive Date: 20140611
  Receipt Date: 20140611
  Transmission Date: 20141212
  Serious: Yes (Hospitalization, Other)
  Sender: FDA-Public Use
  Company Number: FR-ACTAVIS-2014-11896

PATIENT
  Age: 72 Year
  Sex: Female

DRUGS (5)
  1. FLUDARABINE (UNKNOWN) [Suspect]
     Indication: LYMPHOCYTIC LEUKAEMIA
     Dosage: UNKNOWN
     Route: 065
  2. CYCLOPHOSPHAMIDE (UNKNOWN) [Suspect]
     Indication: LYMPHOCYTIC LEUKAEMIA
     Dosage: UNKNOWN
     Route: 065
  3. RITUXIMAB [Suspect]
     Indication: LYMPHOCYTIC LEUKAEMIA
     Dosage: UNKNOWN
     Route: 065
  4. COTRIMAZOL [Concomitant]
     Indication: ANTIFUNGAL PROPHYLAXIS
     Dosage: UNKNOWN
     Route: 065
  5. VALACICLOVIR [Concomitant]
     Indication: ANTIVIRAL PROPHYLAXIS
     Dosage: UNKNOWN
     Route: 065

REACTIONS (4)
  - Cryptococcosis [Recovering/Resolving]
  - Osteomyelitis fungal [Recovering/Resolving]
  - Pneumonia cryptococcal [Recovering/Resolving]
  - Alpha haemolytic streptococcal infection [Unknown]
